FAERS Safety Report 5905429-8 (Version None)
Quarter: 2008Q4

REPORT INFORMATION
  Report Type: 
  Country: None (occurrence: None)
  Receive Date: 20081001
  Receipt Date: 20081001
  Transmission Date: 20090506
  Serious: No
  Sender: FDA-Public Use
  Company Number: None

PATIENT

DRUGS (2)
  1. ACITRETIN [Suspect]
     Dosage: 1 KIT DAILY ORAL
     Route: 048
  2. EMOLLIENT COMB 25 MG [Suspect]
     Dosage: 1 KIT DAILY TOPICAL
     Route: 061

REACTIONS (2)
  - CIRCUMSTANCE OR INFORMATION CAPABLE OF LEADING TO MEDICATION ERROR [None]
  - MEDICATION ERROR [None]
